FAERS Safety Report 11517301 (Version 1)
Quarter: 2015Q3

REPORT INFORMATION
  Report Type: Spontaneous
  Country: US (occurrence: US)
  Receive Date: 20150917
  Receipt Date: 20150917
  Transmission Date: 20151125
  Serious: Yes (Other)
  Sender: FDA-Public Use
  Company Number: US-BAXTER-2015BAX051055

PATIENT
  Sex: Male

DRUGS (6)
  1. CEFAZOLIN INJECTION [Suspect]
     Active Substance: CEFAZOLIN
     Indication: FOETAL EXPOSURE TIMING UNSPECIFIED
     Route: 064
  2. PROGESTERONE. [Suspect]
     Active Substance: PROGESTERONE
     Indication: FOETAL EXPOSURE TIMING UNSPECIFIED
     Route: 064
  3. INDOMETHACIN. [Suspect]
     Active Substance: INDOMETHACIN
     Indication: FOETAL EXPOSURE TIMING UNSPECIFIED
     Route: 064
  4. MAGNESIUM [Suspect]
     Active Substance: MAGNESIUM
     Indication: FOETAL EXPOSURE TIMING UNSPECIFIED
     Route: 064
  5. BETAMETHASONE. [Suspect]
     Active Substance: BETAMETHASONE
     Indication: FOETAL EXPOSURE TIMING UNSPECIFIED
     Route: 064
  6. BETAMETHASONE. [Suspect]
     Active Substance: BETAMETHASONE
     Indication: MATERNAL THERAPY TO ENHANCE FOETAL LUNG MATURITY

REACTIONS (3)
  - Foetal exposure during pregnancy [Recovered/Resolved]
  - Premature baby [Recovered/Resolved]
  - Bradycardia foetal [Unknown]
